FAERS Safety Report 5227350-3 (Version None)
Quarter: 2007Q1

REPORT INFORMATION
  Report Type: 
  Country: None (occurrence: None)
  Receive Date: 20070202
  Receipt Date: 20070124
  Transmission Date: 20070707
  Serious: Yes (Other)
  Sender: FDA-Public Use
  Company Number: 2007AC00156

PATIENT
  Age: 9 Year
  Sex: Male

DRUGS (1)
  1. BUPIVACAINE [Suspect]
     Indication: POSTOPERATIVE ANALGESIA
     Route: 008

REACTIONS (1)
  - PERONEAL NERVE PALSY [None]
